FAERS Safety Report 10514703 (Version 3)
Quarter: 2014Q4

REPORT INFORMATION
  Report Type: Spontaneous
  Country: JP (occurrence: JP)
  Receive Date: 20141013
  Receipt Date: 20141124
  Transmission Date: 20150528
  Serious: Yes (Life-Threatening)
  Sender: FDA-Public Use
  Company Number: JP-NAPPMUNDI-GBR-2014-0022668

PATIENT
  Age: 72 Year
  Sex: Male

DRUGS (27)
  1. ARGAMATE [Concomitant]
     Active Substance: POLYSTYRENE
     Indication: HYPERKALAEMIA
     Dosage: 50 G, DAILY
     Route: 048
     Dates: start: 20140918
  2. CALCICOL [Concomitant]
     Active Substance: CALCIUM GLUCONATE
     Indication: HYPOCALCAEMIA
     Dosage: 10 ML, DAILY
     Route: 042
     Dates: start: 20140927
  3. CANCER DRUG [Suspect]
     Active Substance: UNSPECIFIED INGREDIENT
  4. TRAMCET [Concomitant]
     Active Substance: ACETAMINOPHEN\TRAMADOL
     Dosage: 75 MG, DAILY
     Dates: start: 20140912
  5. TRAMCET [Concomitant]
     Active Substance: ACETAMINOPHEN\TRAMADOL
     Dosage: 75 MG, DAILY
     Route: 048
     Dates: start: 20121213, end: 20130209
  6. JANUVIA [Concomitant]
     Active Substance: SITAGLIPTIN PHOSPHATE
     Indication: DIABETES MELLITUS
     Dosage: 50 MG, DAILY
     Route: 048
  7. BAYASPIRIN [Concomitant]
     Active Substance: ASPIRIN
     Indication: ANGINA PECTORIS
     Dosage: 100 MG, DAILY
     Route: 048
  8. BROTIZOLAM [Concomitant]
     Active Substance: BROTIZOLAM
     Indication: INSOMNIA
     Dosage: 0.25 MG, DAILY
     Route: 048
     Dates: start: 20140906
  9. LACTULOSE. [Concomitant]
     Active Substance: LACTULOSE
     Indication: CONSTIPATION
     Dosage: 30 ML, DAILY
     Route: 048
     Dates: start: 20141004
  10. UNASYN S [Concomitant]
     Indication: PYREXIA
     Dosage: 3.0 G, DAILY
     Route: 042
     Dates: start: 20140927, end: 20141003
  11. 5-FU                               /00098801/ [Suspect]
     Active Substance: FLUOROURACIL
     Indication: HEPATIC CANCER
     Dosage: UNK
     Route: 042
     Dates: start: 20140909, end: 20140922
  12. TAKEPRON [Concomitant]
     Active Substance: LANSOPRAZOLE
     Indication: GASTRITIS
     Dosage: 15 MG, DAILY
     Route: 048
  13. HARNAL [Concomitant]
     Active Substance: TAMSULOSIN HYDROCHLORIDE
     Indication: BENIGN PROSTATIC HYPERPLASIA
     Dosage: 0.2 MG, DAILY
     Route: 048
  14. LOXOPROFEN [Concomitant]
     Active Substance: LOXOPROFEN
     Indication: BACK PAIN
     Dosage: 60 MG, PRN
     Route: 048
  15. VASELINE                           /00473501/ [Concomitant]
     Route: 061
  16. RANDA [Concomitant]
     Active Substance: CISPLATIN
     Indication: HEPATIC CANCER
     Dosage: 20 ML, DAILY
     Route: 042
     Dates: start: 20140909, end: 20140922
  17. TRAMCET [Concomitant]
     Active Substance: ACETAMINOPHEN\TRAMADOL
     Dosage: 75 MG, DAILY
     Route: 048
     Dates: start: 20121126, end: 20121212
  18. PRIMPERAN [Concomitant]
     Active Substance: METOCLOPRAMIDE HYDROCHLORIDE
     Indication: NAUSEA
     Dosage: 10 MG, DAILY
     Route: 042
     Dates: start: 20140910, end: 20140923
  19. TRAMCET [Concomitant]
     Active Substance: ACETAMINOPHEN\TRAMADOL
     Dosage: 150 MG, DAILY
     Route: 048
     Dates: start: 20130210, end: 20140911
  20. DEPAS [Concomitant]
     Active Substance: ETIZOLAM
     Indication: INSOMNIA
     Dosage: 0.5 MG, DAILY
     Route: 048
  21. PLAVIX [Concomitant]
     Active Substance: CLOPIDOGREL BISULFATE
     Indication: ANGINA PECTORIS
     Dosage: 75 MG, DAILY
     Route: 048
  22. FERROUS SODIUM CITRATE [Concomitant]
     Indication: ANAEMIA
     Dosage: 100 MG, DAILY
     Route: 048
     Dates: start: 20141009
  23. SENNOSIDE                          /00571901/ [Concomitant]
     Active Substance: SENNOSIDES A AND B
     Indication: CONSTIPATION
     Dosage: 12 MG, PRN
     Route: 048
     Dates: start: 20140922
  24. SPIRONOLACTONE. [Concomitant]
     Active Substance: SPIRONOLACTONE
     Indication: OEDEMA
     Dosage: 25 MG, DAILY
     Route: 048
     Dates: start: 20141010
  25. NORSPAN [Suspect]
     Active Substance: BUPRENORPHINE
     Indication: FRACTURE PAIN
     Dosage: 5 MCG, Q1H
     Route: 062
     Dates: start: 20140911, end: 20140925
  26. PANTETHINE [Concomitant]
     Active Substance: PANTETHINE
     Indication: HYPERLIPIDAEMIA
     Dosage: 400 MG, DAILY
     Route: 048
  27. LOCOID [Concomitant]
     Active Substance: HYDROCORTISONE BUTYRATE
     Dosage: UNK
     Route: 061

REACTIONS (6)
  - Renal failure [Recovered/Resolved]
  - Blood pressure decreased [Unknown]
  - Decreased appetite [Unknown]
  - Cardiac failure [Recovered/Resolved]
  - Stress cardiomyopathy [Recovered/Resolved]
  - Nausea [Unknown]

NARRATIVE: CASE EVENT DATE: 20140925
